FAERS Safety Report 10945823 (Version 3)
Quarter: 2015Q2

REPORT INFORMATION
  Report Type: Spontaneous
  Country: JP (occurrence: JP)
  Receive Date: 20150323
  Receipt Date: 20150420
  Transmission Date: 20150821
  Serious: Yes (Other)
  Sender: FDA-Public Use
  Company Number: JP-TEVA-549576ISR

PATIENT

DRUGS (3)
  1. CISPLATIN. [Suspect]
     Active Substance: CISPLATIN
     Indication: NASOPHARYNGEAL CANCER
     Dosage: RECEIVED 3 CYCLES OF CISPLATIN 100MG/M2 FOLLOWED BY CISPLATIN AT 80MG/M2 ON DAY 1
     Route: 065
  2. CISPLATIN. [Suspect]
     Active Substance: CISPLATIN
     Indication: NASOPHARYNGEAL CANCER
     Dosage: CYCLICAL; 80MG/M2 ON DAY 1 (ADJUVANT CHEMOTHERAPY)
     Route: 065
  3. FLUOROURACIL. [Suspect]
     Active Substance: FLUOROURACIL
     Indication: NASOPHARYNGEAL CANCER
     Dosage: CYCLICAL; 1000MG/M2 ON DAY1-4 (ADJUVANT CHEMOTHERAPY)
     Route: 065

REACTIONS (1)
  - Aspiration [Unknown]
